FAERS Safety Report 16963806 (Version 2)
Quarter: 2019Q4

REPORT INFORMATION
  Report Type: Spontaneous
  Country: US (occurrence: US)
  Receive Date: 20191026
  Receipt Date: 20191112
  Transmission Date: 20200122
  Serious: No
  Sender: FDA-Public Use
  Company Number: NVSC2019US012067

PATIENT
  Age: 18 Year
  Sex: Female

DRUGS (2)
  1. LINEZOLID. [Suspect]
     Active Substance: LINEZOLID
     Indication: ARTHRITIS BACTERIAL
     Dosage: UNK
     Route: 065
     Dates: end: 20081107
  2. CIPROFLOXACIN. [Suspect]
     Active Substance: CIPROFLOXACIN
     Indication: ARTHRITIS BACTERIAL
     Dosage: UNK
     Route: 065
     Dates: end: 20081107

REACTIONS (3)
  - Peripheral swelling [Unknown]
  - Hypersensitivity [Unknown]
  - Product use in unapproved indication [Unknown]

NARRATIVE: CASE EVENT DATE: 20181007
